FAERS Safety Report 4285629-6 (Version None)
Quarter: 2004Q1

REPORT INFORMATION
  Report Type: 
  Country: None (occurrence: None)
  Receive Date: 20040203
  Receipt Date: 20040121
  Transmission Date: 20041129
  Serious: Yes (Hospitalization)
  Sender: FDA-Public Use
  Company Number: JP-JNJFOC-20031002056

PATIENT
  Age: 55 Year
  Sex: Female
  Weight: 65 kg

DRUGS (26)
  1. REMICADE [Suspect]
     Indication: RHEUMATOID ARTHRITIS
     Dosage: SEE IMAGE
     Route: 041
     Dates: start: 20030730, end: 20030730
  2. REMICADE [Suspect]
     Indication: RHEUMATOID ARTHRITIS
     Dosage: SEE IMAGE
     Route: 041
     Dates: start: 20030820, end: 20030820
  3. REMICADE [Suspect]
     Indication: RHEUMATOID ARTHRITIS
     Dosage: SEE IMAGE
     Route: 041
     Dates: start: 20030917, end: 20030917
  4. REMICADE [Suspect]
     Indication: RHEUMATOID ARTHRITIS
     Dosage: SEE IMAGE
     Route: 041
     Dates: start: 20031105, end: 20031105
  5. RHEUMATREX [Suspect]
     Indication: RHEUMATOID ARTHRITIS
     Dosage: 6 MG,  IN 1 DAY ORAL
     Route: 048
     Dates: start: 20010904, end: 20031121
  6. PREDNISOLONE [Suspect]
     Indication: RHEUMATOID ARTHRITIS
     Dosage: 7.5 MG, IN 1 DAY , ORAL
     Route: 048
     Dates: start: 20010904
  7. ETIZOLAM [Concomitant]
  8. TEPRENONE [Concomitant]
  9. MARZULENE S [Concomitant]
  10. TOUGHMAC E [Concomitant]
  11. BETAMETHASONE SODIUM PHOSPHATE [Concomitant]
  12. CELESTAMINE TAB [Concomitant]
  13. FELBINAC [Concomitant]
  14. FLUCONAZOLE [Concomitant]
  15. ALENDRONATE SODIUM [Concomitant]
  16. ISONIAZID [Concomitant]
  17. VOLTAREN [Concomitant]
  18. FOLIAMIN (FOLIC ACID) [Concomitant]
  19. PARIET (RABEPRAZOLE SODIUM) TABLETS [Concomitant]
  20. CLARITHROMYCIN TABLETS [Concomitant]
  21. PRIMPERAN TAB [Concomitant]
  22. LENDORM [Concomitant]
  23. AMLODIN (AMLODIPINE BESILATE) TABLETS [Concomitant]
  24. AZULFIDINE [Concomitant]
  25. DEPAS (ETIZOLAM) TABLETS [Concomitant]
  26. SELBEX (TEPRENONE) [Concomitant]

REACTIONS (28)
  - ALBUMIN GLOBULIN RATIO DECREASED [None]
  - ARTHRALGIA [None]
  - BLOOD ALBUMIN DECREASED [None]
  - BLOOD CHOLESTEROL INCREASED [None]
  - BLOOD FIBRINOGEN INCREASED [None]
  - BLOOD URIC ACID INCREASED [None]
  - C-REACTIVE PROTEIN INCREASED [None]
  - CHILLS [None]
  - CREATINE PHOSPHOKINASE DECREASED [None]
  - CRYPTOGENIC ORGANIZING PNEUMONIA [None]
  - DRUG INEFFECTIVE [None]
  - FATIGUE [None]
  - GLYCOSYLATED HAEMOGLOBIN INCREASED [None]
  - HAEMATOCRIT DECREASED [None]
  - HAEMOGLOBIN DECREASED [None]
  - INCREASED UPPER AIRWAY SECRETION [None]
  - LUNG INFILTRATION [None]
  - LYMPHOCYTE PERCENTAGE DECREASED [None]
  - MONOCYTE PERCENTAGE INCREASED [None]
  - NAUSEA [None]
  - NEUTROPHIL PERCENTAGE INCREASED [None]
  - PNEUMONIA BACTERIAL [None]
  - PYREXIA [None]
  - RED BLOOD CELL COUNT DECREASED [None]
  - RHEUMATOID FACTOR INCREASED [None]
  - STOMATITIS [None]
  - SWELLING [None]
  - WHITE BLOOD CELL COUNT INCREASED [None]
